FAERS Safety Report 9023802 (Version 1)
Quarter: 2013Q1

REPORT INFORMATION
  Report Type: Spontaneous
  Country: US (occurrence: US)
  Receive Date: 20130121
  Receipt Date: 20130121
  Transmission Date: 20140127
  Serious: No
  Sender: FDA-Public Use
  Company Number: US-PFIZER INC-2013023806

PATIENT
  Age: 49 Year
  Sex: Female
  Weight: 63.49 kg

DRUGS (3)
  1. GABAPENTIN [Suspect]
     Indication: MUSCLE SPASMS
     Dosage: 300 MG, DAILY
     Dates: start: 20121011, end: 20121017
  2. GABAPENTIN [Suspect]
     Indication: TREMOR
     Dosage: 300 MG, 4X/DAY
     Dates: start: 20121018, end: 20121020
  3. ACTOS [Concomitant]
     Indication: HYPOGLYCAEMIA
     Dosage: 30 MG, DAILY

REACTIONS (2)
  - Off label use [Unknown]
  - Drug ineffective for unapproved indication [Not Recovered/Not Resolved]
